FAERS Safety Report 9914987 (Version 1)
Quarter: 2014Q1

REPORT INFORMATION
  Report Type: Spontaneous
  Country: FR (occurrence: FR)
  Receive Date: 20140220
  Receipt Date: 20140220
  Transmission Date: 20141002
  Serious: Yes (Death, Other)
  Sender: FDA-Public Use
  Company Number: PHHY2014FR018374

PATIENT
  Age: 27 Year
  Sex: Male
  Weight: 67 kg

DRUGS (11)
  1. ALCOHOL [Suspect]
  2. FLUNITRAZEPAM [Suspect]
  3. COCAINE [Suspect]
  4. MORPHINE [Suspect]
  5. DIACETYLMORPHINE [Suspect]
  6. CLORAZEPATE DIPOTASSIUM [Suspect]
  7. VALIUM [Suspect]
  8. CANNABIS [Suspect]
  9. NORDAZEPAM [Suspect]
  10. AMPHETAMINE [Suspect]
  11. LSD [Suspect]

REACTIONS (3)
  - Toxicity to various agents [Fatal]
  - Drug dependence [Unknown]
  - Drug abuse [Unknown]
